FAERS Safety Report 5504045-X (Version None)
Quarter: 2007Q4

REPORT INFORMATION
  Report Type: 
  Country: None (occurrence: None)
  Receive Date: 20071101
  Receipt Date: 20071024
  Transmission Date: 20080405
  Serious: Yes (Other)
  Sender: FDA-Public Use
  Company Number: PHBS2007CN17832

PATIENT
  Sex: Female

DRUGS (4)
  1. SEBIVO [Suspect]
     Indication: HEPATITIS B
     Dosage: 600 MG, QD
     Route: 048
     Dates: start: 20070601
  2. HUGANNING [Concomitant]
  3. URSO FALK [Concomitant]
  4. ORYZANOL [Concomitant]

REACTIONS (10)
  - BILIRUBIN CONJUGATED INCREASED [None]
  - BLOOD BILIRUBIN INCREASED [None]
  - BLOOD BILIRUBIN UNCONJUGATED INCREASED [None]
  - CHOLELITHIASIS [None]
  - MOBILITY DECREASED [None]
  - PAIN [None]
  - POOR QUALITY SLEEP [None]
  - PROTEIN TOTAL DECREASED [None]
  - PRURITUS [None]
  - TOTAL BILE ACIDS INCREASED [None]
